FAERS Safety Report 24783365 (Version 1)
Quarter: 2024Q4

REPORT INFORMATION
  Report Type: Spontaneous
  Country: GB (occurrence: GB)
  Receive Date: 20241227
  Receipt Date: 20241227
  Transmission Date: 20250114
  Serious: Yes (Other)
  Sender: TEVA
  Company Number: GB-MHRA-TPP1472561C1965331YC1734515163092

PATIENT
  Age: 76 Year
  Sex: Female
  Weight: 86 kg

DRUGS (21)
  1. LANSOPRAZOLE [Suspect]
     Active Substance: LANSOPRAZOLE
     Indication: Ill-defined disorder
     Route: 065
     Dates: start: 20241028, end: 20241104
  2. DULOXETINE [Concomitant]
     Active Substance: DULOXETINE
     Indication: Ill-defined disorder
     Dosage: TAKE ONE ALTERNATE DAYS
     Route: 065
     Dates: start: 20240321, end: 20241120
  3. FAMOTIDINE [Concomitant]
     Active Substance: FAMOTIDINE
     Indication: Ill-defined disorder
     Dosage: TAKE ONE TABLET TWICE DAILY
     Route: 065
     Dates: start: 20240924
  4. PREDNISOLONE [Concomitant]
     Active Substance: PREDNISOLONE
     Indication: Ill-defined disorder
     Dosage: TAKE 6 PER DAY
     Route: 065
     Dates: start: 20241028, end: 20241104
  5. LANSOPRAZOLE [Concomitant]
     Active Substance: LANSOPRAZOLE
     Indication: Ill-defined disorder
     Dosage: TAKE ONE TWICE DAILY
     Route: 065
     Dates: start: 20240321, end: 20241120
  6. PEPPERMINT OIL [Concomitant]
     Active Substance: PEPPERMINT OIL
     Indication: Ill-defined disorder
     Dosage: TIME INTERVAL: 0.33333333 DAYS: TAKE ONE OR TWO CAPSULES THREE TIMES A DAY BEFO...
     Route: 065
     Dates: start: 20241218
  7. AMOXICILLIN [Suspect]
     Active Substance: AMOXICILLIN
     Indication: Product used for unknown indication
     Dosage: AMOXICILLIN WITH CLARITHROMYCIN AND LANSOPRAZOLE TRIPLE PACK 500MG + 500MG + 30MG
     Route: 065
     Dates: start: 20241028, end: 20241104
  8. CARBOMER [Concomitant]
     Active Substance: CARBOMER
     Indication: Ill-defined disorder
     Dosage: TIME INTERVAL: AS NECESSARY: PUT ONE DROP INTO THE AFFECTED EYE(S) AS NECESS...CLINITAS
     Route: 047
     Dates: start: 20240321, end: 20240925
  9. BECLOMETHASONE DIPROPIONATE\FORMOTEROL FUMARATE\GLYCOPYRROLATE [Concomitant]
     Active Substance: BECLOMETHASONE DIPROPIONATE\FORMOTEROL FUMARATE\GLYCOPYRROLATE
     Indication: Dyspnoea
     Dosage: INHALE 2 PUFFS TWICE A DAY FOR BREATHLESSNESS A...
     Route: 055
     Dates: start: 20240321
  10. SALIVIX [Concomitant]
     Indication: Ill-defined disorder
     Dosage: USE AS DIRECTED
     Route: 065
     Dates: start: 20240321, end: 20240925
  11. BACLOFEN [Concomitant]
     Active Substance: BACLOFEN
     Indication: Ill-defined disorder
     Dosage: TIME INTERVAL: 0.33333333 DAYS: TAKE ONE TABLET TWO TO THREE TIMES A DAY
     Route: 065
     Dates: start: 20240321
  12. ALVERINE CITRATE [Concomitant]
     Active Substance: ALVERINE CITRATE
     Indication: Ill-defined disorder
     Dosage: TIME INTERVAL: 0.33333333 DAYS: TAKE ONE CAPSULE ONE TO THREE TIMES A DAY
     Route: 065
     Dates: start: 20240924
  13. ATORVASTATIN [Concomitant]
     Active Substance: ATORVASTATIN
     Indication: Blood cholesterol decreased
     Dosage: TAKE ONE TABLET EACH DAY TO HELP LOWER CHOLESTEROL
     Route: 065
     Dates: start: 20240321
  14. RHINOCORT [Concomitant]
     Active Substance: BUDESONIDE
     Indication: Ill-defined disorder
     Dosage: TWO SPRAYS INTO EACH NOSTRIL ONCE DAILY IN THE ...
     Route: 065
     Dates: start: 20240321, end: 20240925
  15. CLARITHROMYCIN [Concomitant]
     Active Substance: CLARITHROMYCIN
     Indication: Ill-defined disorder
     Route: 065
     Dates: start: 20241028, end: 20241104
  16. HYDRAMED [Concomitant]
     Indication: Ill-defined disorder
     Dosage: PUT 1 TO 2 DROPS INTO THE AFFECTED EYE(S) AS NE...
     Route: 047
     Dates: start: 20240321, end: 20240925
  17. BETAHISTINE [Concomitant]
     Active Substance: BETAHISTINE
     Indication: Ill-defined disorder
     Dosage: TIME INTERVAL: 0.33333333 DAYS: TAKE ONE 2- 3 TIMES/DAY
     Route: 065
     Dates: start: 20240321
  18. MEBEVERINE HYDROCHLORIDE [Concomitant]
     Active Substance: MEBEVERINE HYDROCHLORIDE
     Indication: Ill-defined disorder
     Dosage: TIME INTERVAL: 0.33333333 DAYS: TAKE ONE TABLET THREE TIMES A DAY 20 MINUTES BE...
     Route: 065
     Dates: start: 20240321, end: 20241108
  19. LORATADINE [Concomitant]
     Active Substance: LORATADINE
     Indication: Hypersensitivity
     Route: 065
     Dates: start: 20240321, end: 20241120
  20. FUROSEMIDE [Concomitant]
     Active Substance: FUROSEMIDE
     Indication: Ill-defined disorder
     Dosage: MORNING
     Route: 065
     Dates: start: 20240321, end: 20241120
  21. ACETAMINOPHEN [Concomitant]
     Active Substance: ACETAMINOPHEN
     Indication: Ill-defined disorder
     Dosage: TAKE 1 OR 2 TABLETS UP TO 4 TIMES/DAY AS REQUIR...
     Route: 065
     Dates: start: 20240321, end: 20240925

REACTIONS (1)
  - Abdominal discomfort [Unknown]
